FAERS Safety Report 6714981-4 (Version None)
Quarter: 2010Q2

REPORT INFORMATION
  Report Type: 
  Country: None (occurrence: None)
  Receive Date: 20100507
  Receipt Date: 20100430
  Transmission Date: 20101027
  Serious: Yes (Hospitalization, Other)
  Sender: FDA-Public Use
  Company Number: US-CEPHALON-2010002286

PATIENT
  Sex: Female
  Weight: 91 kg

DRUGS (13)
  1. PROVIGIL [Suspect]
     Indication: MULTIPLE SCLEROSIS
     Route: 048
     Dates: start: 20090101, end: 20100321
  2. PROZAC [Concomitant]
  3. SYNTHROID [Concomitant]
  4. BUPROPION HCL [Concomitant]
  5. ZANAFLEX [Concomitant]
  6. BUSPIRONE HCL [Concomitant]
  7. AVONEX [Concomitant]
  8. CALCIUM WITH VITAMIN D [Concomitant]
  9. FISH OIL [Concomitant]
  10. AMITRIPTYLINE HCL [Concomitant]
  11. NORCO [Concomitant]
  12. CLONAZEPAM [Concomitant]
  13. LORTAB [Concomitant]

REACTIONS (8)
  - BLOOD PRESSURE INCREASED [None]
  - CONVULSION [None]
  - DYSPNOEA [None]
  - ERYTHEMA [None]
  - HEART RATE INCREASED [None]
  - ORAL DISORDER [None]
  - TREMOR [None]
  - UTERINE DISORDER [None]
